FAERS Safety Report 15126000 (Version 1)
Quarter: 2018Q3

REPORT INFORMATION
  Report Type: Spontaneous
  Country: ES (occurrence: ES)
  Receive Date: 20180710
  Receipt Date: 20180710
  Transmission Date: 20181010
  Serious: Yes (Other)
  Sender: FDA-Public Use
  Company Number: ES-LPDUSPRD-20181237

PATIENT
  Age: 42 Year
  Sex: Female

DRUGS (1)
  1. FERINJECT [Suspect]
     Active Substance: FERRIC CARBOXYMALTOSE
     Dosage: 1000 MG
     Route: 042
     Dates: start: 20180323, end: 20180323

REACTIONS (3)
  - Pruritus [Unknown]
  - Rash [Unknown]
  - Rash papular [Unknown]

NARRATIVE: CASE EVENT DATE: 20180323
